FAERS Safety Report 17970671 (Version 1)
Quarter: 2020Q3

REPORT INFORMATION
  Report Type: Spontaneous
  Country: US (occurrence: US)
  Receive Date: 20200702
  Receipt Date: 20200702
  Transmission Date: 20201103
  Serious: No
  Sender: FDA-Public Use
  Company Number: US-STRIDES ARCOLAB LIMITED-2020SP005984

PATIENT
  Age: 30 Year
  Sex: Female

DRUGS (4)
  1. MIDAZOLAM. [Suspect]
     Active Substance: MIDAZOLAM
     Indication: RHEGMATOGENOUS RETINAL DETACHMENT
     Dosage: UNK
     Route: 065
  2. BUPIVACAINE. [Suspect]
     Active Substance: BUPIVACAINE
     Indication: RHEGMATOGENOUS RETINAL DETACHMENT
     Dosage: UNK
     Route: 065
  3. FENTANYL. [Suspect]
     Active Substance: FENTANYL
     Indication: RHEGMATOGENOUS RETINAL DETACHMENT
     Dosage: UNK
     Route: 042
  4. LIDOCAINE. [Suspect]
     Active Substance: LIDOCAINE
     Indication: RHEGMATOGENOUS RETINAL DETACHMENT
     Dosage: UNK (SUB?TENONS BLOCK OF LIDOCAINE)
     Route: 065

REACTIONS (2)
  - Maternal exposure during pregnancy [Unknown]
  - No adverse event [Unknown]
